FAERS Safety Report 18211537 (Version 1)
Quarter: 2020Q3

REPORT INFORMATION
  Report Type: Spontaneous
  Country: US (occurrence: US)
  Receive Date: 20200831
  Receipt Date: 20200831
  Transmission Date: 20201103
  Serious: Yes (Other)
  Sender: FDA-Public Use
  Company Number: US-SA-2020SA230237

PATIENT

DRUGS (1)
  1. ZANTAC [Suspect]
     Active Substance: RANITIDINE HYDROCHLORIDE
     Dosage: UNK
     Dates: start: 200001, end: 201901

REACTIONS (8)
  - Ovarian cancer [Unknown]
  - Gastrointestinal carcinoma [Unknown]
  - Uterine cancer [Unknown]
  - Renal cancer [Unknown]
  - Bladder cancer [Unknown]
  - Breast cancer [Unknown]
  - Hepatic cancer [Unknown]
  - Gastric cancer [Unknown]

NARRATIVE: CASE EVENT DATE: 200101
